FAERS Safety Report 5852962-3 (Version None)
Quarter: 2008Q3

REPORT INFORMATION
  Report Type: 
  Country: None (occurrence: None)
  Receive Date: 20080821
  Receipt Date: 20080813
  Transmission Date: 20090109
  Serious: Yes (Other)
  Sender: FDA-Public Use
  Company Number: FR-ABBOTT-08P-056-0470480-00

PATIENT
  Age: 4 Year
  Sex: Male

DRUGS (4)
  1. MICROPAKINE GRANULE [Suspect]
     Indication: DRUG USE FOR UNKNOWN INDICATION
     Dosage: FORM: 100 MILLIGRAMS
     Route: 048
     Dates: start: 20080101, end: 20080801
  2. MICROPAKINE GRANULE [Suspect]
     Dates: start: 20080801
  3. VIGABATRIN [Concomitant]
     Indication: DRUG USE FOR UNKNOWN INDICATION
  4. TOPIRAMATE [Concomitant]
     Indication: DRUG USE FOR UNKNOWN INDICATION

REACTIONS (1)
  - CONVULSION [None]
